FAERS Safety Report 6074243-8 (Version None)
Quarter: 2009Q1

REPORT INFORMATION
  Report Type: 
  Country: None (occurrence: None)
  Receive Date: 20090211
  Receipt Date: 20090205
  Transmission Date: 20090719
  Serious: Yes (Death, Life-Threatening, Hospitalization)
  Sender: FDA-Public Use
  Company Number: JP-ABBOTT-09P-087-0500889-00

PATIENT
  Age: 80 Year
  Sex: Male
  Weight: 50 kg

DRUGS (12)
  1. LEUPROLIDE ACETATE [Suspect]
     Indication: PROSTATE CANCER STAGE IV
     Route: 058
     Dates: start: 20080104, end: 20081126
  2. CHLORMADINONE ACETATE TAB [Concomitant]
     Indication: PROSTATE CANCER STAGE IV
     Route: 048
     Dates: start: 20071221, end: 20080812
  3. CASODEX [Concomitant]
     Indication: PROSTATE CANCER STAGE IV
     Route: 048
     Dates: start: 20080813, end: 20081104
  4. PREDONINE [Concomitant]
     Indication: PROSTATE CANCER STAGE IV
     Route: 042
     Dates: start: 20081104, end: 20081203
  5. PREDONINE [Concomitant]
     Route: 042
     Dates: start: 20081204, end: 20081219
  6. PREDONINE [Concomitant]
     Route: 042
     Dates: start: 20081204, end: 20081219
  7. ROCEPHIN [Concomitant]
     Indication: PYELONEPHRITIS
     Route: 042
     Dates: start: 20081102, end: 20081110
  8. SOLITA-T3 [Concomitant]
     Indication: PYELONEPHRITIS
     Route: 042
     Dates: start: 20081102, end: 20081110
  9. SOLITA-T1 [Concomitant]
     Indication: PYELONEPHRITIS
     Route: 042
     Dates: start: 20081111, end: 20081219
  10. VITAMEDIN [Concomitant]
     Indication: HYPOVITAMINOSIS
     Route: 042
     Dates: start: 20081103, end: 20081217
  11. GASTER [Concomitant]
     Indication: PEPTIC ULCER
     Route: 042
     Dates: start: 20081103, end: 20081219
  12. ADONA [Concomitant]
     Indication: URINARY BLADDER HAEMORRHAGE
     Route: 042
     Dates: start: 20081119, end: 20081219

REACTIONS (5)
  - ANAEMIA [None]
  - METASTASES TO LUNG [None]
  - METASTASES TO LYMPH NODES [None]
  - PLATELET COUNT DECREASED [None]
  - PROSTATE CANCER [None]
